FAERS Safety Report 4962230-X (Version None)
Quarter: 2006Q1

REPORT INFORMATION
  Report Type: 
  Country: None (occurrence: None)
  Receive Date: 20060329
  Receipt Date: 20060323
  Transmission Date: 20060701
  Serious: Yes (Hospitalization)
  Sender: FDA-Public Use
  Company Number: HQWYE494823MAR06

PATIENT
  Age: 54 Year
  Sex: Female

DRUGS (2)
  1. CORDARONE [Suspect]
     Dosage: 200 MG TABLET ORAL
     Route: 048
     Dates: start: 20040101
  2. PREVISCAN (FLUINDIONE) [Concomitant]

REACTIONS (9)
  - ALANINE AMINOTRANSFERASE INCREASED [None]
  - ANTINUCLEAR ANTIBODY POSITIVE [None]
  - ASPARTATE AMINOTRANSFERASE INCREASED [None]
  - GENERAL PHYSICAL HEALTH DETERIORATION [None]
  - HYPOTHYROIDISM [None]
  - INTERSTITIAL LUNG DISEASE [None]
  - MUSCLE DISORDER [None]
  - PLEURAL EFFUSION [None]
  - POLYNEUROPATHY [None]
